FAERS Safety Report 7003660-4 (Version None)
Quarter: 2010Q3

REPORT INFORMATION
  Report Type: 
  Country: None (occurrence: None)
  Receive Date: 20100920
  Receipt Date: 20091221
  Transmission Date: 20110219
  Serious: No
  Sender: FDA-Public Use
  Company Number: US-WYE-H10181309

PATIENT
  Age: 40 Year
  Sex: Female
  Weight: 55.39 kg

DRUGS (2)
  1. PRISTIQ [Suspect]
     Indication: DEPRESSION
     Route: 048
     Dates: start: 20090709, end: 20090715
  2. LORATADINE [Concomitant]

REACTIONS (3)
  - ANXIETY [None]
  - FEELING JITTERY [None]
  - INSOMNIA [None]
